FAERS Safety Report 7323315-6 (Version None)
Quarter: 2011Q1

REPORT INFORMATION
  Report Type: 
  Country: None (occurrence: None)
  Receive Date: 20110301
  Receipt Date: 20110223
  Transmission Date: 20110831
  Serious: Yes (Other)
  Sender: FDA-Public Use
  Company Number: US-PFIZER INC-2011039640

PATIENT
  Sex: Female

DRUGS (3)
  1. LYRICA [Suspect]
     Dosage: 600 MG, 1X/DAY
     Dates: start: 20100101
  2. LYRICA [Suspect]
     Dosage: 200 MG, 1X/DAY
     Dates: end: 20100101
  3. LYRICA [Suspect]
     Dosage: 200 MG, 1X/DAY
     Dates: start: 20100101

REACTIONS (9)
  - THINKING ABNORMAL [None]
  - SWELLING [None]
  - WEIGHT INCREASED [None]
  - NERVE INJURY [None]
  - MENTAL IMPAIRMENT [None]
  - CARDIAC DISORDER [None]
  - ANXIETY [None]
  - DYSPNOEA [None]
  - SUICIDAL IDEATION [None]
